FAERS Safety Report 4456077-0 (Version None)
Quarter: 2004Q3

REPORT INFORMATION
  Report Type: 
  Country: None (occurrence: None)
  Receive Date: 20040920
  Receipt Date: 20040902
  Transmission Date: 20050211
  Serious: Yes (Hospitalization)
  Sender: FDA-Public Use
  Company Number: 204133

PATIENT
  Age: 56 Year
  Sex: Male
  Weight: 104.3273 kg

DRUGS (1)
  1. AVONEX [Suspect]
     Indication: MULTIPLE SCLEROSIS
     Dosage: 30 MG QW IM
     Route: 030
     Dates: start: 20040701

REACTIONS (19)
  - APHASIA [None]
  - ARTHRALGIA [None]
  - ASTHENIA [None]
  - BLOOD GLUCOSE INCREASED [None]
  - BODY TEMPERATURE INCREASED [None]
  - CONDITION AGGRAVATED [None]
  - DELUSION [None]
  - DIABETIC KETOACIDOTIC HYPERGLYCAEMIC COMA [None]
  - FALL [None]
  - INFLUENZA LIKE ILLNESS [None]
  - LACERATION [None]
  - LETHARGY [None]
  - LOSS OF CONSCIOUSNESS [None]
  - MIGRAINE [None]
  - MULTIPLE SCLEROSIS [None]
  - MUSCLE DISORDER [None]
  - MYALGIA [None]
  - POLLAKIURIA [None]
  - UPPER LIMB FRACTURE [None]
